FAERS Safety Report 4977670-2 (Version None)
Quarter: 2006Q2

REPORT INFORMATION
  Report Type: 
  Country: None (occurrence: None)
  Receive Date: 20060420
  Receipt Date: 20050406
  Transmission Date: 20061013
  Serious: No
  Sender: FDA-Public Use
  Company Number: US-GLAXOSMITHKLINE-A0553007A

PATIENT
  Age: 41 Year
  Sex: Female

DRUGS (2)
  1. ESKALITH [Suspect]
     Dosage: 450MG PER DAY
     Route: 048
     Dates: start: 20030101
  2. LITHIUM CARBONATE [Concomitant]

REACTIONS (5)
  - ALOPECIA [None]
  - FATIGUE [None]
  - MYALGIA [None]
  - THYROID NEOPLASM [None]
  - WEIGHT INCREASED [None]
